FAERS Safety Report 12844379 (Version 1)
Quarter: 2016Q4

REPORT INFORMATION
  Report Type: Spontaneous
  Country: NL (occurrence: NL)
  Receive Date: 20161013
  Receipt Date: 20161013
  Transmission Date: 20170207
  Serious: Yes (Hospitalization)
  Sender: FDA-Public Use
  Company Number: NL-TEVA-699821ACC

PATIENT
  Age: 56 Year
  Sex: Female
  Weight: 80 kg

DRUGS (1)
  1. COPAXONE [Suspect]
     Active Substance: GLATIRAMER ACETATE
     Indication: MULTIPLE SCLEROSIS
     Dosage: 3 TIMES PER WEEK 1 PIECE(S)
     Route: 058
     Dates: start: 20160515, end: 20160808

REACTIONS (3)
  - Urinary retention [Recovered/Resolved]
  - Post procedural complication [Recovered/Resolved]
  - Urinary tract infection [Recovered/Resolved]

NARRATIVE: CASE EVENT DATE: 20160808
